FAERS Safety Report 9994998 (Version 1)
Quarter: 2014Q1

REPORT INFORMATION
  Report Type: Spontaneous
  Country: US (occurrence: US)
  Receive Date: 20140311
  Receipt Date: 20140311
  Transmission Date: 20141002
  Serious: Yes (Hospitalization, Other)
  Sender: FDA-Public Use
  Company Number: US-SA-2014SA029567

PATIENT
  Age: 63 Year
  Sex: Female

DRUGS (2)
  1. LANTUS [Suspect]
     Indication: DIABETES MELLITUS
     Dosage: DOSE:40 UNIT(S)
     Route: 051
  2. ALL OTHER THERAPEUTIC PRODUCTS [Concomitant]

REACTIONS (7)
  - Nervous system disorder [Not Recovered/Not Resolved]
  - Diabetic gastroparesis [Not Recovered/Not Resolved]
  - Nausea [Not Recovered/Not Resolved]
  - Vomiting [Not Recovered/Not Resolved]
  - Dehydration [Not Recovered/Not Resolved]
  - Hyperglycaemia [Not Recovered/Not Resolved]
  - Drug dose omission [Unknown]
